FAERS Safety Report 6232303-2 (Version None)
Quarter: 2009Q2

REPORT INFORMATION
  Report Type: 
  Country: None (occurrence: None)
  Receive Date: 20090617
  Receipt Date: 20090608
  Transmission Date: 20091009
  Serious: Yes (Other)
  Sender: FDA-Public Use
  Company Number: US-JNJFOC-20090401001

PATIENT
  Sex: Female

DRUGS (7)
  1. REMICADE [Suspect]
     Dosage: APPROX. 35 WEEKS GESTATION
     Route: 042
  2. REMICADE [Suspect]
     Dosage: APPROX. 33 WEEKS GESTATION
     Route: 042
  3. REMICADE [Suspect]
     Indication: BEHCET'S SYNDROME
     Dosage: 4 WEEKS GESTATION
     Route: 042
  4. KEPPRA [Concomitant]
     Indication: CONVULSION
     Dosage: 0-35 WEEKS GESTAION
     Route: 048
  5. VITAMIN AND MINERAL PRENATAL SUPPLEMENT W/ FOLIC ACID CAP [Concomitant]
     Dosage: STARTED AT 6 WEEKS
     Route: 048
  6. PREDNISONE [Concomitant]
     Indication: INFLAMMATION
     Dosage: DOSE: 5-20 MG DAILY (STARTED AT 12 WEEKS GESTATION)
     Route: 048
  7. FOLIC ACID [Concomitant]
     Dosage: DOSE: 4-5 MG DAILY (STARTED AT 6 WEEKS GESTATION)
     Route: 048

REACTIONS (3)
  - AUTOIMMUNE DISORDER [None]
  - DRUG EXPOSURE DURING PREGNANCY [None]
  - PREMATURE LABOUR [None]
